FAERS Safety Report 11050589 (Version 1)
Quarter: 2015Q2

REPORT INFORMATION
  Report Type: Spontaneous
  Country: US (occurrence: None)
  Receive Date: 20150420
  Receipt Date: 20150420
  Transmission Date: 20150821
  Serious: Yes (Other)
  Sender: FDA-Public Use
  Company Number: None

PATIENT
  Age: 42 Year
  Sex: Male
  Weight: 79.38 kg

DRUGS (2)
  1. MEN^S ONE A DAY VITAMINS [Concomitant]
  2. CHANTIX [Suspect]
     Active Substance: VARENICLINE TARTRATE
     Indication: SMOKING CESSATION THERAPY
     Dosage: TAKEN BY MOUTH
     Dates: start: 20140721, end: 20140827

REACTIONS (13)
  - Agitation [None]
  - Anger [None]
  - Feeling abnormal [None]
  - Negative thoughts [None]
  - Disorientation [None]
  - Confusional state [None]
  - Irritability [None]
  - Memory impairment [None]
  - Disturbance in attention [None]
  - Mood altered [None]
  - Aggression [None]
  - Imprisonment [None]
  - Self-injurious ideation [None]

NARRATIVE: CASE EVENT DATE: 20140808
